FAERS Safety Report 9030262 (Version 1)
Quarter: 2013Q1

REPORT INFORMATION
  Report Type: Spontaneous
  Country: FR (occurrence: FR)
  Receive Date: 20130122
  Receipt Date: 20130122
  Transmission Date: 20140127
  Serious: Yes (Life-Threatening)
  Sender: FDA-Public Use
  Company Number: FR-ASTRAZENECA-2013SE01777

PATIENT
  Age: 10377 Day
  Sex: Male

DRUGS (6)
  1. DIPRIVAN [Suspect]
     Indication: GENERAL ANAESTHESIA
     Route: 042
     Dates: start: 20090901, end: 20090901
  2. XYLOCAINE [Suspect]
     Indication: GENERAL ANAESTHESIA
     Route: 042
     Dates: start: 20090901, end: 20090901
  3. AUGMENTIN [Suspect]
     Route: 042
     Dates: start: 20090901, end: 20090901
  4. HYPNOVEL [Suspect]
     Indication: GENERAL ANAESTHESIA
     Route: 042
     Dates: start: 20090901, end: 20090901
  5. SUFENTA [Suspect]
     Indication: GENERAL ANAESTHESIA
     Route: 042
     Dates: start: 20090901, end: 20090901
  6. TRACRIUM [Suspect]
     Indication: GENERAL ANAESTHESIA
     Route: 042
     Dates: start: 20090901, end: 20090901

REACTIONS (1)
  - Anaphylactoid shock [Recovered/Resolved]
